FAERS Safety Report 9626991 (Version 1)
Quarter: 2013Q4

REPORT INFORMATION
  Report Type: Spontaneous
  Country: NZ (occurrence: NZ)
  Receive Date: 20131016
  Receipt Date: 20131016
  Transmission Date: 20140711
  Serious: Yes (Other)
  Sender: FDA-Public Use
  Company Number: PHHY2013NZ113665

PATIENT
  Age: 23 Year
  Sex: Male

DRUGS (3)
  1. RISPERIDONE [Suspect]
     Dosage: 5 MG/DAY
     Route: 048
  2. RISPERIDONE [Suspect]
     Dosage: 3 MG/DAY
     Route: 048
  3. RISPERIDONE [Suspect]
     Dosage: 50 MG, UNK
     Route: 030

REACTIONS (2)
  - Hypersexuality [Recovered/Resolved]
  - Exhibitionism [Recovered/Resolved]
